FAERS Safety Report 6600870-2 (Version None)
Quarter: 2010Q1

REPORT INFORMATION
  Report Type: 
  Country: None (occurrence: None)
  Receive Date: 20100225
  Receipt Date: 20091229
  Transmission Date: 20100710
  Serious: No
  Sender: FDA-Public Use
  Company Number: A0834135A

PATIENT
  Age: 90 Year
  Sex: Female
  Weight: 63.2 kg

DRUGS (10)
  1. LAMICTAL CD [Suspect]
     Dosage: 50MG TWICE PER DAY
     Route: 048
     Dates: start: 20071101
  2. VITAMIN B-12 [Concomitant]
  3. VITAMIN B6 [Concomitant]
  4. CALCIUM WITH VITAMIN D [Concomitant]
  5. MIRALAX [Concomitant]
  6. ASPIRIN [Concomitant]
     Dosage: 81MG PER DAY
  7. VITAMIN C [Concomitant]
  8. VITAMIN B1 TAB [Concomitant]
  9. GARLIC [Concomitant]
  10. CENTRUM SILVER [Concomitant]

REACTIONS (2)
  - MEAN CELL HAEMOGLOBIN INCREASED [None]
  - MEAN CELL VOLUME INCREASED [None]
